FAERS Safety Report 7640276 (Version 2)
Quarter: 2012Q4

REPORT INFORMATION
  Report Type: 
  Country: US (occurrence: US)
  Receive Date: 20101026
  Receipt Date: 20120905
  Transmission Date: 20130627
  Serious: No
  Sender: FDA-Public Use
  Company Number: US-US-EMD SERONO, INC.-7023329

PATIENT
  Age: 64 None
  Sex: Female

DRUGS (1)
  1. REBIF [Suspect]
     Indication: MULTIPLE SCLEROSIS
     Route: 058
     Dates: start: 20051024

REACTIONS (7)
  - Asthma [Recovering/Resolving]
  - Nasopharyngitis [Recovering/Resolving]
  - Memory impairment [Recovering/Resolving]
  - Central nervous system lesion [Unknown]
  - Nervousness [Unknown]
  - Umbilical hernia [Unknown]
  - Depression [Recovered/Resolved]
